FAERS Safety Report 8779586 (Version 1)
Quarter: 2012Q4

REPORT INFORMATION
  Report Type: 
  Country: US (occurrence: US)
  Receive Date: 20120912
  Receipt Date: 20120912
  Transmission Date: 20130627
  Serious: Yes (Other)
  Sender: FDA-Public Use
  Company Number: US-PFIZER INC-2012223164

PATIENT
  Age: 60 Year
  Sex: Male
  Weight: 104.31 kg

DRUGS (1)
  1. LIPITOR [Suspect]
     Indication: BLOOD CHOLESTEROL INCREASED
     Dosage: UNK, 1x/day
     Route: 048
     Dates: start: 2009, end: 2010

REACTIONS (1)
  - Myocardial infarction [Recovered/Resolved]
